FAERS Safety Report 5948498-1 (Version None)
Quarter: 2008Q4

REPORT INFORMATION
  Report Type: 
  Country: None (occurrence: None)
  Receive Date: 20081021
  Receipt Date: 20080215
  Transmission Date: 20090506
  Serious: Yes (Other)
  Sender: FDA-Public Use
  Company Number: HQWYE938823FEB06

PATIENT
  Age: 59 Year
  Sex: Female

DRUGS (8)
  1. PREMARIN [Suspect]
     Indication: OESTROGEN REPLACEMENT THERAPY
  2. CYCRIN [Suspect]
     Indication: HORMONE REPLACEMENT THERAPY
  3. ESTRADIOL [Suspect]
     Indication: HORMONE REPLACEMENT THERAPY
  4. ESTRIOL (ESTRIOL,) [Suspect]
     Indication: HORMONE REPLACEMENT THERAPY
  5. ESTROGENS (ESTROGENS,) [Suspect]
     Indication: OESTROGEN REPLACEMENT THERAPY
  6. PROGESTERONE [Suspect]
     Indication: HORMONE REPLACEMENT THERAPY
  7. PROGESTIN INJ [Suspect]
     Indication: HORMONE REPLACEMENT THERAPY
  8. PROVERA [Suspect]
     Indication: HORMONE REPLACEMENT THERAPY

REACTIONS (1)
  - BREAST CANCER [None]
